FAERS Safety Report 8516291-1 (Version None)
Quarter: 2012Q3

REPORT INFORMATION
  Report Type: 
  Country: None (occurrence: None)
  Receive Date: 20120717
  Receipt Date: 20120628
  Transmission Date: 20120928
  Serious: Yes (Other)
  Sender: FDA-Public Use
  Company Number: PHHY2012FR050241

PATIENT
  Sex: Male
  Weight: 78 kg

DRUGS (3)
  1. ACETAMINOPHEN [Concomitant]
     Dates: start: 20120202
  2. RASILEZ [Suspect]
     Indication: HYPERTENSION
     Dosage: 1 DF, DAILY
     Dates: start: 20120202, end: 20120601
  3. METEOSPASMYL [Concomitant]
     Dates: start: 20120202

REACTIONS (2)
  - SLEEP APNOEA SYNDROME [None]
  - SEVERE ACUTE RESPIRATORY SYNDROME [None]
